FAERS Safety Report 24360391 (Version 1)
Quarter: 2024Q3

REPORT INFORMATION
  Report Type: Spontaneous
  Country: US (occurrence: US)
  Receive Date: 20240925
  Receipt Date: 20240925
  Transmission Date: 20241016
  Serious: No
  Sender: CIPLA
  Company Number: US-CIPLA LTD.-2024US07031

PATIENT

DRUGS (1)
  1. DICLOFENAC [Suspect]
     Active Substance: DICLOFENAC
     Indication: Face injury
     Dosage: UNK
     Route: 061

REACTIONS (11)
  - Malaise [Not Recovered/Not Resolved]
  - Illness [Unknown]
  - Off label use [Unknown]
  - Perfume sensitivity [Unknown]
  - Pain [Not Recovered/Not Resolved]
  - Adverse event [Not Recovered/Not Resolved]
  - Gait disturbance [Unknown]
  - Psoriasis [Unknown]
  - Product quality issue [Unknown]
  - Product odour abnormal [Unknown]
  - Application site irritation [Unknown]

NARRATIVE: CASE EVENT DATE: 20240729
